FAERS Safety Report 16523337 (Version 1)
Quarter: 2019Q3

REPORT INFORMATION
  Report Type: Spontaneous
  Country: BE (occurrence: BE)
  Receive Date: 20190703
  Receipt Date: 20190703
  Transmission Date: 20191004
  Serious: Yes (Death)
  Sender: FDA-Public Use
  Company Number: BE-ACCORD-135933

PATIENT
  Age: 73 Year
  Sex: Female

DRUGS (4)
  1. XEPLION [Suspect]
     Active Substance: PALIPERIDONE PALMITATE
  2. RISPERDAL [Interacting]
     Active Substance: RISPERIDONE
  3. ALLOPURINOL. [Suspect]
     Active Substance: ALLOPURINOL
  4. BIPRESSIN [Interacting]
     Active Substance: TODRALAZINE HYDROCHLORIDE MONOHYDRATE
     Dosage: 10 MG/5 MG

REACTIONS (7)
  - Cerebral haemorrhage [Fatal]
  - Bone marrow failure [Fatal]
  - Fall [Fatal]
  - Drug interaction [Fatal]
  - Altered state of consciousness [Fatal]
  - Thrombocytopenia [Fatal]
  - Pancytopenia [Fatal]
